FAERS Safety Report 11122551 (Version 1)
Quarter: 2015Q2

REPORT INFORMATION
  Report Type: Spontaneous
  Country: US (occurrence: None)
  Receive Date: 20150518
  Receipt Date: 20150518
  Transmission Date: 20150821
  Serious: No
  Sender: FDA-Public Use
  Company Number: None

PATIENT
  Age: 61 Year
  Sex: Female
  Weight: 78.47 kg

DRUGS (7)
  1. MULTI-VITAMINS [Concomitant]
  2. CELEBREX [Concomitant]
     Active Substance: CELECOXIB
  3. ASPIRIN. [Concomitant]
     Active Substance: ASPIRIN
  4. CONTRAVE [Suspect]
     Active Substance: BUPROPION HYDROCHLORIDE\NALTREXONE HYDROCHLORIDE
     Indication: WEIGHT DECREASED
     Dosage: 1, THEN 2, THEN 3, THEN 4?ONCE DAILY?TAKEN BY MOUTH
     Route: 048
  5. NASONEX [Concomitant]
     Active Substance: MOMETASONE FUROATE
  6. CENTESTIN [Concomitant]
  7. VITAMIN B12 [Concomitant]
     Active Substance: CYANOCOBALAMIN

REACTIONS (13)
  - Vomiting [None]
  - Dry mouth [None]
  - Confusional state [None]
  - Dizziness [None]
  - Fatigue [None]
  - Tremor [None]
  - Hyperhidrosis [None]
  - Headache [None]
  - Insomnia [None]
  - Gait disturbance [None]
  - Dysgraphia [None]
  - Nausea [None]
  - Constipation [None]

NARRATIVE: CASE EVENT DATE: 20150514
